FAERS Safety Report 14325182 (Version 1)
Quarter: 2017Q4

REPORT INFORMATION
  Report Type: Spontaneous
  Country: JP (occurrence: JP)
  Receive Date: 20171226
  Receipt Date: 20171226
  Transmission Date: 20180321
  Serious: Yes (Hospitalization)
  Sender: FDA-Public Use
  Company Number: JP-ASTRAZENECA-2017SE99936

PATIENT
  Age: 89 Year
  Sex: Male

DRUGS (1)
  1. TAGRISSO [Suspect]
     Active Substance: OSIMERTINIB
     Indication: NON-SMALL CELL LUNG CANCER
     Route: 048
     Dates: start: 20170906

REACTIONS (7)
  - Cardiac failure [Not Recovered/Not Resolved]
  - Hypophagia [Unknown]
  - Electrolyte imbalance [Unknown]
  - Performance status decreased [Unknown]
  - Hyponatraemia [Recovered/Resolved]
  - Pleural effusion [Unknown]
  - Product use issue [Unknown]

NARRATIVE: CASE EVENT DATE: 20170925
